FAERS Safety Report 10059811 (Version 2)
Quarter: 2014Q2

REPORT INFORMATION
  Report Type: Spontaneous
  Country: US (occurrence: None)
  Receive Date: 20140402
  Receipt Date: 20140522
  Transmission Date: 20141212
  Serious: Yes (Hospitalization)
  Sender: FDA-Public Use
  Company Number: AUR-APL-2014-04034

PATIENT
  Age: 56 Year
  Sex: Female
  Weight: 56.4 kg

DRUGS (7)
  1. LIDOCAINE [Suspect]
     Indication: IMPLANTABLE DEFIBRILLATOR INSERTION
     Route: 058
  2. ISOSORBIDE DINITRATE [Concomitant]
     Indication: IMPLANTABLE DEFIBRILLATOR INSERTION
     Route: 058
  3. CARVEDILOL [Concomitant]
  4. MIDAZOLAM [Concomitant]
  5. FENTANYL [Concomitant]
  6. CANDESARTAN [Concomitant]
  7. HYDRALAZINE [Concomitant]

REACTIONS (9)
  - Toxicity to various agents [None]
  - Generalised tonic-clonic seizure [None]
  - Pulseless electrical activity [None]
  - Pulse absent [None]
  - Heart rate abnormal [None]
  - Respiratory acidosis [None]
  - Metabolic acidosis [None]
  - Blood pressure abnormal [None]
  - Oxygen saturation abnormal [None]
